FAERS Safety Report 8461546 (Version 4)
Quarter: 2012Q4

REPORT INFORMATION
  Report Type: Report from Study
  Country: DE (occurrence: DE)
  Receive Date: 20120313
  Receipt Date: 20121003
  Transmission Date: 20130627
  Serious: Yes (Death, Hospitalization)
  Sender: FDA-Public Use
  Company Number: DE-ROCHE-1045721

PATIENT
  Age: 49 Year
  Sex: Male
  Weight: 84 kg

DRUGS (4)
  1. PEGASYS [Suspect]
     Indication: HEPATITIS C
     Route: 058
     Dates: start: 20111020
  2. COPEGUS [Suspect]
     Indication: HEPATITIS C
     Route: 048
     Dates: start: 20111020
  3. COPEGUS [Suspect]
     Route: 048
  4. TELAPREVIR [Suspect]
     Indication: HEPATITIS C
     Dosage: last dos prior to SAE; 12/Jan/2012
     Route: 048
     Dates: start: 20111020

REACTIONS (3)
  - Ascites [Recovered/Resolved with Sequelae]
  - Hepatic cirrhosis [Recovered/Resolved with Sequelae]
  - Hepatic failure [Fatal]
